FAERS Safety Report 18040921 (Version 2)
Quarter: 2020Q3

REPORT INFORMATION
  Report Type: Report from Study
  Country: FR (occurrence: FR)
  Receive Date: 20200717
  Receipt Date: 20200728
  Transmission Date: 20201103
  Serious: Yes (Death, Hospitalization)
  Sender: FDA-Public Use
  Company Number: FR-BAXTER-2020BAX014668

PATIENT
  Age: 75 Year
  Sex: Female
  Weight: 56 kg

DRUGS (4)
  1. DOXIL [Suspect]
     Active Substance: DOXORUBICIN HYDROCHLORIDE
     Indication: OVARIAN CANCER RECURRENT
     Dosage: 1 MG/M2
     Route: 042
     Dates: start: 20150203, end: 20150225
  2. CORTANCYL [Concomitant]
     Active Substance: PREDNISONE
     Indication: PRODUCT USED FOR UNKNOWN INDICATION
     Dosage: 10 MG
     Route: 048
  3. LEVOTHYROX [Concomitant]
     Active Substance: LEVOTHYROXINE
     Indication: PRODUCT USED FOR UNKNOWN INDICATION
     Route: 048
  4. YONDELIS [Suspect]
     Active Substance: TRABECTEDIN
     Indication: OVARIAN CANCER RECURRENT
     Dosage: 0.0367 MG/M2
     Route: 042
     Dates: start: 20200203, end: 20200225

REACTIONS (3)
  - Septic shock [Fatal]
  - General physical condition abnormal [Unknown]
  - Aplasia [Fatal]

NARRATIVE: CASE EVENT DATE: 20150308
